FAERS Safety Report 21110770 (Version 2)
Quarter: 2022Q3

REPORT INFORMATION
  Report Type: Spontaneous
  Country: US (occurrence: US)
  Receive Date: 20220721
  Receipt Date: 20220727
  Transmission Date: 20221027
  Serious: No
  Sender: FDA-Public Use
  Company Number: US-JNJFOC-20220739206

PATIENT

DRUGS (1)
  1. WOMENS ROGAINE UNSCENTED [Suspect]
     Active Substance: MINOXIDIL
     Indication: Product used for unknown indication
     Dosage: USING ABOUT HALF A CAPFUL ONCE A DAY
     Route: 065

REACTIONS (2)
  - Hair texture abnormal [Unknown]
  - Product container issue [Unknown]

NARRATIVE: CASE EVENT DATE: 20220501
